FAERS Safety Report 18467840 (Version 1)
Quarter: 2020Q4

REPORT INFORMATION
  Report Type: Spontaneous
  Country: US (occurrence: US)
  Receive Date: 20201104
  Receipt Date: 20201104
  Transmission Date: 20210114
  Serious: Yes (Life-Threatening, Hospitalization, Other)
  Sender: FDA-Public Use
  Company Number: None

PATIENT
  Age: 61 Year
  Sex: Male

DRUGS (3)
  1. ALLOPURINOL. [Concomitant]
     Active Substance: ALLOPURINOL
  2. FLECAINIDE [Suspect]
     Active Substance: FLECAINIDE
     Indication: ATRIAL FIBRILLATION
     Dosage: ?          QUANTITY:1 TABLET(S);?
  3. WARFARIN [Concomitant]
     Active Substance: WARFARIN

REACTIONS (3)
  - Cardiac disorder [None]
  - Loss of consciousness [None]
  - Atrioventricular block [None]

NARRATIVE: CASE EVENT DATE: 20201023
